FAERS Safety Report 12424011 (Version 1)
Quarter: 2016Q2

REPORT INFORMATION
  Report Type: Spontaneous
  Country: US (occurrence: None)
  Receive Date: 20160531
  Receipt Date: 20160531
  Transmission Date: 20160815
  Serious: No
  Sender: FDA-Public Use
  Company Number: None

PATIENT
  Age: 79 Year
  Sex: Female

DRUGS (1)
  1. ENTECAVIR 0.5MG AURIOBINDO [Suspect]
     Active Substance: ENTECAVIR
     Indication: HEPATITIS B
     Route: 048
     Dates: start: 20140406

REACTIONS (4)
  - Neck pain [None]
  - Headache [None]
  - Chest discomfort [None]
  - Product substitution issue [None]

NARRATIVE: CASE EVENT DATE: 20160406
